FAERS Safety Report 7904788-4 (Version None)
Quarter: 2011Q4

REPORT INFORMATION
  Report Type: 
  Country: None (occurrence: None)
  Receive Date: 20111109
  Receipt Date: 20111027
  Transmission Date: 20120403
  Serious: Yes (Other)
  Sender: FDA-Public Use
  Company Number: PHEH2011US07946

PATIENT
  Sex: Male

DRUGS (11)
  1. LYRICA [Concomitant]
  2. NEXIUM [Concomitant]
  3. TERAZOSIN HCL [Concomitant]
  4. SANDOSTATIN LAR [Suspect]
     Dosage: 30 MG, QW3
  5. LIPITOR [Concomitant]
  6. PROZAC [Concomitant]
  7. GLIPIZIDE [Concomitant]
  8. SANDOSTATIN LAR [Suspect]
     Dosage: 20 MG, QW2
     Dates: start: 20020101
  9. METOPROLOL SUCCINATE [Concomitant]
  10. DIOVAN [Concomitant]
  11. LANTUS [Concomitant]

REACTIONS (4)
  - NEOPLASM PROGRESSION [None]
  - UNDERDOSE [None]
  - TERMINAL STATE [None]
  - NEEDLE ISSUE [None]
